FAERS Safety Report 5837801-9 (Version None)
Quarter: 2008Q3

REPORT INFORMATION
  Report Type: 
  Country: None (occurrence: None)
  Receive Date: 20080807
  Receipt Date: 20080729
  Transmission Date: 20090109
  Serious: Yes (Death, Other)
  Sender: FDA-Public Use
  Company Number: DE-ABBOTT-08P-062-0438836-00

PATIENT
  Age: 60 Year
  Sex: Female

DRUGS (2)
  1. HUMIRA [Suspect]
     Indication: DRUG USE FOR UNKNOWN INDICATION
     Route: 058
     Dates: start: 20040401, end: 20050201
  2. METHOTREXATE [Concomitant]
     Indication: DRUG USE FOR UNKNOWN INDICATION
     Dates: start: 20020201, end: 20050201

REACTIONS (6)
  - ABDOMINAL HERNIA [None]
  - ABDOMINAL HERNIA GANGRENOUS [None]
  - CHRONIC OBSTRUCTIVE PULMONARY DISEASE [None]
  - ENTERITIS NECROTICANS [None]
  - PERITONITIS [None]
  - SMALL INTESTINE GANGRENE [None]
